FAERS Safety Report 5341417-0 (Version None)
Quarter: 2007Q2

REPORT INFORMATION
  Report Type: 
  Country: None (occurrence: None)
  Receive Date: 20070529
  Receipt Date: 20070529
  Transmission Date: 20071010
  Serious: Yes (Life-Threatening, Hospitalization, Other)
  Sender: FDA-Public Use
  Company Number: None

PATIENT
  Sex: Female

DRUGS (21)
  1. ACETAZOLAMIDE [Suspect]
     Indication: MIGRAINE
     Dosage: 250MG BID PO
     Route: 048
     Dates: start: 20070521, end: 20070521
  2. TOLAZAMIDE [Suspect]
  3. FAMOTIDINE [Concomitant]
  4. NAPAROXEN [Concomitant]
  5. TRAMADOL HCL [Concomitant]
  6. CETIRIZINE HCL [Concomitant]
  7. MONTELUKAST SODIUM [Concomitant]
  8. BUPROPION HCL [Concomitant]
  9. MOMETASONE FUROATE [Concomitant]
  10. BUDESONIDE [Concomitant]
  11. ACETAMINOPHEN AND HYDROCODONE BITARTRATE [Concomitant]
  12. CITALOPRAM HYDROBROMIDE [Concomitant]
  13. CYCLOBENZAPRINE HCL [Concomitant]
  14. RABEPRAZOLE SODIUM [Concomitant]
  15. GABAPENTIN [Concomitant]
  16. SUMATRIPTAN SUCCINATE [Concomitant]
  17. NARATRIPTAN [Concomitant]
  18. SELENIUM SULFIDE [Concomitant]
  19. VITAMIN B6 [Concomitant]
  20. YERBA MATE [Concomitant]
  21. VITAMIN B3 [Concomitant]

REACTIONS (5)
  - BLOOD GLUCOSE DECREASED [None]
  - CONFUSIONAL STATE [None]
  - HYPERHIDROSIS [None]
  - MEDICATION ERROR [None]
  - TREMOR [None]
